FAERS Safety Report 7325477-3 (Version None)
Quarter: 2011Q1

REPORT INFORMATION
  Report Type: 
  Country: None (occurrence: None)
  Receive Date: 20110218
  Receipt Date: 20110203
  Transmission Date: 20110831
  Serious: Yes (Other)
  Sender: FDA-Public Use
  Company Number: AUR-APL-2011-00500

PATIENT
  Sex: Male

DRUGS (1)
  1. METFORMIN [Suspect]

REACTIONS (1)
  - BLOOD GLUCOSE FLUCTUATION [None]
